FAERS Safety Report 11594747 (Version 2)
Quarter: 2016Q1

REPORT INFORMATION
  Report Type: Spontaneous
  Country: US (occurrence: US)
  Receive Date: 20151005
  Receipt Date: 20160208
  Transmission Date: 20160525
  Serious: Yes (Hospitalization)
  Sender: FDA-Public Use
  Company Number: US-BAYER-2015-432850

PATIENT
  Age: 47 Year
  Sex: Female

DRUGS (1)
  1. ACETYLSALICYLIC ACID (} 100 MG) [Suspect]
     Active Substance: ASPIRIN
     Indication: INTENTIONAL OVERDOSE
     Dosage: 1 BOTTLE ONCE

REACTIONS (7)
  - Respiratory alkalosis [Recovering/Resolving]
  - Metabolic alkalosis [Recovering/Resolving]
  - Suicide attempt [None]
  - Tinnitus [None]
  - Toxicity to various agents [Recovering/Resolving]
  - Metabolic acidosis [Recovered/Resolved]
  - Intentional overdose [None]
